FAERS Safety Report 23313993 (Version 1)
Quarter: 2023Q4

REPORT INFORMATION
  Report Type: Spontaneous
  Country: US (occurrence: US)
  Receive Date: 20231219
  Receipt Date: 20231219
  Transmission Date: 20240110
  Serious: No
  Sender: FDA-Public Use
  Company Number: US-PFIZER INC-202300429511

PATIENT
  Age: 9 Year
  Sex: Female
  Weight: 25.76 kg

DRUGS (2)
  1. GENOTROPIN [Suspect]
     Active Substance: SOMATROPIN
     Indication: Blood growth hormone
     Dosage: 1.1 MG, DAILY
  2. GENOTROPIN [Suspect]
     Active Substance: SOMATROPIN
     Dosage: 1.0 MG, DAILY

REACTIONS (3)
  - Drug dose omission by device [Unknown]
  - Underdose [Unknown]
  - Device breakage [Unknown]

NARRATIVE: CASE EVENT DATE: 20231201
